FAERS Safety Report 13156101 (Version 1)
Quarter: 2017Q1

REPORT INFORMATION
  Report Type: Spontaneous
  Country: KZ (occurrence: RU)
  Receive Date: 20170126
  Receipt Date: 20170126
  Transmission Date: 20170428
  Serious: Yes (Hospitalization, Other)
  Sender: FDA-Public Use
  Company Number: KZ-BAYER-2017-010179

PATIENT
  Age: 52 Year
  Sex: Male

DRUGS (2)
  1. ASPIRIN. [Suspect]
     Active Substance: ASPIRIN
     Dosage: UNK
  2. CLOPIDOGREL [Suspect]
     Active Substance: CLOPIDOGREL BISULFATE
     Dosage: UNK

REACTIONS (14)
  - Mallory-Weiss syndrome [None]
  - Blood pressure decreased [None]
  - Erosive duodenitis [None]
  - Asthenia [None]
  - Palpitations [None]
  - Haemorrhagic anaemia [None]
  - Gastritis erosive [None]
  - Heart disease congenital [None]
  - Hypertension [None]
  - Dizziness [None]
  - Myocardial fibrosis [None]
  - Gastric haemorrhage [None]
  - Labelled drug-drug interaction medication error [None]
  - Adams-Stokes syndrome [None]

NARRATIVE: CASE EVENT DATE: 20111129
